FAERS Safety Report 19940522 (Version 1)
Quarter: 2021Q4

REPORT INFORMATION
  Report Type: Spontaneous
  Country: US (occurrence: US)
  Receive Date: 20211011
  Receipt Date: 20211011
  Transmission Date: 20220304
  Serious: No
  Sender: FDA-Public Use
  Company Number: US-PERRIGO-21US003739

PATIENT
  Age: 89 Year
  Sex: Female
  Weight: 78.01 kg

DRUGS (6)
  1. IMIQUIMOD [Suspect]
     Active Substance: IMIQUIMOD
     Indication: Lip disorder
     Dosage: LIGHT APPLICATION, QHS
     Route: 061
     Dates: start: 20210308, end: 20210312
  2. IMIQUIMOD [Suspect]
     Active Substance: IMIQUIMOD
     Dosage: LIGHT APPLICATION, QHS
     Route: 061
     Dates: start: 2020, end: 2020
  3. LISINOPRIL [Concomitant]
     Active Substance: LISINOPRIL
     Indication: Blood pressure abnormal
     Dosage: 40 MG
     Route: 065
  4. EZETIMIBE [Concomitant]
     Active Substance: EZETIMIBE
     Indication: Blood cholesterol
     Dosage: 10 MG
     Route: 065
  5. PROPRANOLOL [Concomitant]
     Active Substance: PROPRANOLOL HYDROCHLORIDE
     Indication: Tremor
     Dosage: UNKNOWN, UNKNOWN
     Route: 065
  6. HYDROCHLOROTHIAZIDE [Concomitant]
     Active Substance: HYDROCHLOROTHIAZIDE
     Indication: Joint swelling
     Dosage: UNKNOWN, UNKNOWN
     Route: 065
     Dates: start: 202012

REACTIONS (3)
  - Lip swelling [Recovering/Resolving]
  - Lip pain [Recovering/Resolving]
  - Product administered at inappropriate site [Recovered/Resolved]

NARRATIVE: CASE EVENT DATE: 20200101
